FAERS Safety Report 19088220 (Version 1)
Quarter: 2021Q2

REPORT INFORMATION
  Report Type: Spontaneous
  Country: US (occurrence: US)
  Receive Date: 20210402
  Receipt Date: 20210402
  Transmission Date: 20210717
  Serious: No
  Sender: FDA-Public Use
  Company Number: US-ASTRAZENECA-2021A112055

PATIENT
  Sex: Female
  Weight: 53.1 kg

DRUGS (1)
  1. FASENRA [Suspect]
     Active Substance: BENRALIZUMAB
     Indication: ASTHMA
     Dosage: 30MG EVERY 4 WEEKS FOR THE FIRST 3 DOSES AND EVERY 8 WEEKS THEREAFTER
     Route: 058
     Dates: start: 20210106

REACTIONS (10)
  - Swelling [Unknown]
  - Rash [Unknown]
  - Hypersensitivity [Unknown]
  - Pruritus [Unknown]
  - Rash macular [Recovered/Resolved]
  - Eye swelling [Unknown]
  - Skin burning sensation [Unknown]
  - Erythema [Unknown]
  - Feeling hot [Unknown]
  - Rhinorrhoea [Not Recovered/Not Resolved]
